FAERS Safety Report 7509738-0 (Version None)
Quarter: 2011Q2

REPORT INFORMATION
  Report Type: 
  Country: None (occurrence: None)
  Receive Date: 20110527
  Receipt Date: 20110518
  Transmission Date: 20111010
  Serious: Yes (Other)
  Sender: FDA-Public Use
  Company Number: IT-ASTRAZENECA-2011SE19648

PATIENT
  Age: 78 Year
  Sex: Female

DRUGS (4)
  1. FELODIPINE [Suspect]
     Route: 048
     Dates: start: 20100221
  2. OLPREZIDE [Concomitant]
     Dosage: 20/25 MG, 1 DF, UNKNOWN
     Route: 048
     Dates: start: 20100221
  3. CLONIDINE HCL [Suspect]
     Route: 062
     Dates: start: 20100221, end: 20110220
  4. LASITONE [Concomitant]
     Dosage: 25 MG + 37 MG, 1 DF, UNKNOWN
     Route: 048
     Dates: start: 20100221

REACTIONS (1)
  - BRADYCARDIA [None]
